FAERS Safety Report 7996019-4 (Version None)
Quarter: 2011Q4

REPORT INFORMATION
  Report Type: 
  Country: None (occurrence: None)
  Receive Date: 20111220
  Receipt Date: 20111212
  Transmission Date: 20120403
  Serious: Yes (Hospitalization, Other)
  Sender: FDA-Public Use
  Company Number: PHEH2011US04060

PATIENT
  Sex: Male

DRUGS (23)
  1. EPIPEN [Concomitant]
  2. NOVOLIN R [Concomitant]
  3. NEUPOGEN [Concomitant]
  4. PREVACID [Concomitant]
     Dosage: 30 MG, DAILY
     Dates: start: 20110426
  5. ZOFRAN [Concomitant]
     Indication: NAUSEA
     Dosage: 8 MG (EVERY 8 HOURS), PRN
     Dates: start: 20080728
  6. PERIDEX [Concomitant]
     Dosage: 15 ML, QID
     Dates: start: 20090714
  7. CARAFATE [Concomitant]
     Indication: OROPHARYNGEAL PAIN
  8. VITAMIN D [Concomitant]
     Dosage: 4000 U, QD
     Dates: start: 20110608
  9. EXJADE [Suspect]
     Indication: ACUTE LYMPHOCYTIC LEUKAEMIA
  10. COLACE [Concomitant]
     Dosage: 200 MG, DAILY
     Dates: start: 20110131
  11. MIRALAX [Concomitant]
     Dosage: 17 G, QD
     Dates: start: 20110622
  12. FLUCONAZOLE [Concomitant]
     Dosage: 200 MG, DAILY
     Dates: start: 20110809
  13. DAPSONE [Concomitant]
     Dosage: 200 MG, QW
     Dates: start: 20110815, end: 20110915
  14. CALCIUM CARBONATE [Concomitant]
     Dosage: 1000 MG, TID
     Dates: start: 20110314
  15. BENADRYL [Concomitant]
  16. CHEMOTHERAPEUTICS [Suspect]
  17. EXJADE [Suspect]
     Indication: HEREDITARY HAEMOCHROMATOSIS
  18. EMLA [Concomitant]
  19. ADEKS [Concomitant]
     Dosage: 1 DF, QD
     Dates: start: 20110505
  20. EXJADE [Suspect]
     Indication: CHELATION THERAPY
     Dosage: 1000 MG, QD
     Route: 048
     Dates: start: 20110622, end: 20111104
  21. NEURONTIN [Concomitant]
     Indication: NEUROPATHY PERIPHERAL
     Dosage: 200 MG, PRN
     Dates: start: 20110608
  22. LEUCOVORIN CALCIUM [Concomitant]
  23. NYSTATIN [Concomitant]
     Dosage: 5 ML, QID

REACTIONS (2)
  - MALAISE [None]
  - RASH MACULO-PAPULAR [None]
